FAERS Safety Report 7942913-X (Version None)
Quarter: 2011Q4

REPORT INFORMATION
  Report Type: 
  Country: None (occurrence: None)
  Receive Date: 20111128
  Receipt Date: 20111122
  Transmission Date: 20120403
  Serious: Yes (Life-Threatening, Other)
  Sender: FDA-Public Use
  Company Number: US-MERCK-1110USA04097

PATIENT
  Age: 68 Year
  Sex: Male

DRUGS (4)
  1. EMEND [Suspect]
     Indication: NAUSEA
     Route: 048
     Dates: start: 20111014
  2. EMEND [Suspect]
     Route: 048
     Dates: start: 20100101
  3. EMEND [Suspect]
     Route: 048
     Dates: start: 20100101
  4. EMEND [Suspect]
     Indication: PROPHYLAXIS OF NAUSEA AND VOMITING
     Route: 048
     Dates: start: 20111014

REACTIONS (8)
  - NAUSEA [None]
  - RESPIRATORY DISORDER [None]
  - DYSPNOEA [None]
  - HYPERHIDROSIS [None]
  - CHILLS [None]
  - ANXIETY [None]
  - CHEST DISCOMFORT [None]
  - WHEEZING [None]
